FAERS Safety Report 8864697 (Version 1)
Quarter: 2012Q4

REPORT INFORMATION
  Report Type: 
  Country: US (occurrence: US)
  Receive Date: 20121024
  Receipt Date: 20121024
  Transmission Date: 20130627
  Serious: No
  Sender: FDA-Public Use
  Company Number: US-AMGEN-USASP2011068972

PATIENT
  Age: 73 Year
  Sex: Female

DRUGS (12)
  1. ENBREL [Suspect]
     Indication: PRODUCT USED FOR UNKNOWN INDICATION
     Dosage: 50 mg, qwk
     Route: 058
  2. KLONOPIN [Concomitant]
     Dosage: 0.5 mg, UNK
  3. PREMARIN [Concomitant]
     Dosage: 0.625 mg, UNK
  4. ZYRTEC [Concomitant]
     Dosage: 5 mg, UNK
  5. BUPROPION [Concomitant]
     Dosage: 100 mg, UNK
  6. PAROXETINE [Concomitant]
     Dosage: 40 mg, UNK
  7. SIMVASTATIN [Concomitant]
     Dosage: 10 mg, UNK
  8. LANSOPRAZOLE [Concomitant]
     Dosage: 15 mg, UNK
  9. LEVOTHYROXIN [Concomitant]
     Dosage: 88 mug, UNK
  10. METOPROLOL [Concomitant]
     Dosage: 50 mg, UNK
  11. PRADAXA [Concomitant]
     Dosage: 75 mg, UNK
  12. ASPIRIN [Concomitant]
     Dosage: 81 mg, UNK

REACTIONS (2)
  - Injection site pain [Unknown]
  - Injection site bruising [Unknown]
